FAERS Safety Report 19577005 (Version 1)
Quarter: 2021Q3

REPORT INFORMATION
  Report Type: Spontaneous
  Country: US (occurrence: US)
  Receive Date: 20210719
  Receipt Date: 20210719
  Transmission Date: 20211014
  Serious: No
  Sender: FDA-Public Use
  Company Number: US-GLENMARK PHARMACEUTICALS-2020GMK049389

PATIENT

DRUGS (1)
  1. MUPIROCIN OINTMENT USP, 2% [Suspect]
     Active Substance: MUPIROCIN
     Indication: NASAL CRUSTING
     Dosage: UNK UNK, TID (ROUTE: INTRANASAL), DURATION OF USE: ABOUT 2 WEEKS
     Route: 045
     Dates: start: 2020, end: 2020

REACTIONS (4)
  - Drug effective for unapproved indication [Unknown]
  - Intentional product use issue [Unknown]
  - Nasal dryness [Unknown]
  - Product use issue [Unknown]

NARRATIVE: CASE EVENT DATE: 2020
